FAERS Safety Report 17575778 (Version 1)
Quarter: 2020Q1

REPORT INFORMATION
  Report Type: Spontaneous
  Country: US (occurrence: US)
  Receive Date: 20200318
  Receipt Date: 20200318
  Transmission Date: 20200409
  Serious: Yes (Hospitalization)
  Sender: FDA-Public Use
  Company Number: None

PATIENT
  Sex: Male

DRUGS (3)
  1. NOVAREL [Suspect]
     Active Substance: CHORIOGONADOTROPIN ALFA
     Indication: HYPOPITUITARISM
     Route: 030
     Dates: start: 20200318
  2. GONAL-F RFF [Suspect]
     Active Substance: FOLLITROPIN
     Indication: HYPOPITUITARISM
     Route: 058
     Dates: start: 20200318
  3. TESTOST CYP [Concomitant]
     Active Substance: TESTOSTERONE CYPIONATE

REACTIONS (2)
  - Therapy cessation [None]
  - Hospitalisation [None]
